FAERS Safety Report 9482401 (Version 1)
Quarter: 2013Q3

REPORT INFORMATION
  Report Type: Spontaneous
  Country: US (occurrence: US)
  Receive Date: 20130828
  Receipt Date: 20130828
  Transmission Date: 20140515
  Serious: Yes (Other)
  Sender: FDA-Public Use
  Company Number: US-PFIZER INC-2013244615

PATIENT
  Age: 55 Year
  Sex: Female
  Weight: 71.66 kg

DRUGS (4)
  1. DEPO-MEDROL [Suspect]
     Indication: OSTEOARTHRITIS
     Dosage: 160 MG, UNK
     Route: 030
     Dates: start: 201303
  2. DEPO-MEDROL [Suspect]
     Dosage: 160 MG, UNK
     Route: 030
     Dates: start: 20130819
  3. ALEVE [Concomitant]
     Dosage: UNK
  4. FLEXERIL [Concomitant]
     Dosage: 10 MG, AS NEEDED

REACTIONS (5)
  - Immune system disorder [Recovering/Resolving]
  - Hot flush [Recovering/Resolving]
  - Heart rate increased [Recovering/Resolving]
  - Pyrexia [Recovering/Resolving]
  - White blood cell count increased [Unknown]
